FAERS Safety Report 23446245 (Version 2)
Quarter: 2024Q3

REPORT INFORMATION
  Report Type: Report from Study
  Country: US (occurrence: US)
  Receive Date: 20240126
  Receipt Date: 20240812
  Transmission Date: 20241017
  Serious: Yes (Hospitalization, Other)
  Sender: INSMED
  Company Number: US-INSMED-2023-03073-USAA

PATIENT
  Age: 56 Year
  Sex: Female

DRUGS (4)
  1. ARIKAYCE [Suspect]
     Active Substance: AMIKACIN
     Indication: Mycobacterial infection
     Dosage: 590 MILLIGRAM, QD
     Route: 055
     Dates: start: 202211
  2. ARIKAYCE [Suspect]
     Active Substance: AMIKACIN
     Dosage: 590 MILLIGRAM, WAS NOT TAKING EVERY DAY
     Route: 055
  3. ALBUTEROL [Concomitant]
     Active Substance: ALBUTEROL
     Indication: Product used for unknown indication
     Dosage: UNK
     Route: 065
  4. TRELEGY ELLIPTA [Concomitant]
     Active Substance: FLUTICASONE FUROATE\UMECLIDINIUM BROMIDE\VILANTEROL TRIFENATATE
     Indication: Product used for unknown indication
     Dosage: UNK
     Route: 065

REACTIONS (12)
  - Hospitalisation [Unknown]
  - Total lung capacity decreased [Unknown]
  - Dependence on oxygen therapy [Not Recovered/Not Resolved]
  - Myocardial infarction [Unknown]
  - Condition aggravated [Unknown]
  - Weight increased [Unknown]
  - Chest discomfort [Unknown]
  - Feeling abnormal [Unknown]
  - Anxiety [Unknown]
  - Dyspnoea [Unknown]
  - Drug ineffective [Unknown]
  - Patient dissatisfaction with treatment [Unknown]

NARRATIVE: CASE EVENT DATE: 20230701
